FAERS Safety Report 23746872 (Version 1)
Quarter: 2024Q2

REPORT INFORMATION
  Report Type: Report from Study
  Country: US (occurrence: US)
  Receive Date: 20240416
  Receipt Date: 20240416
  Transmission Date: 20240716
  Serious: Yes (Other)
  Sender: FDA-Public Use
  Company Number: US-EXELIXIS-CABO-24073525

PATIENT
  Sex: Male

DRUGS (5)
  1. CABOMETYX [Suspect]
     Active Substance: CABOZANTINIB S-MALATE
     Indication: Renal cancer
     Dosage: 60 MG, QD
     Route: 048
  2. CABOMETYX [Suspect]
     Active Substance: CABOZANTINIB S-MALATE
     Dosage: 60 MG, QD
     Route: 048
  3. CABOMETYX [Suspect]
     Active Substance: CABOZANTINIB S-MALATE
     Dosage: 60 MG, QD
     Route: 048
  4. CABOMETYX [Suspect]
     Active Substance: CABOZANTINIB S-MALATE
     Dosage: 60 MG, QD
     Route: 048
  5. CABOMETYX [Suspect]
     Active Substance: CABOZANTINIB S-MALATE
     Dosage: 60 MG, QD
     Route: 048

REACTIONS (41)
  - Neuropathy peripheral [Recovering/Resolving]
  - Diabetes mellitus [Unknown]
  - Pneumothorax [Unknown]
  - Intra-abdominal fluid collection [Unknown]
  - Lung disorder [Unknown]
  - Sleep terror [Unknown]
  - Weight fluctuation [Unknown]
  - Fungal infection [Recovering/Resolving]
  - Night blindness [Unknown]
  - Skin hypertrophy [Unknown]
  - Fungal foot infection [Unknown]
  - Incontinence [Unknown]
  - Panic attack [Unknown]
  - Anxiety [Unknown]
  - Skin exfoliation [Unknown]
  - Skin ulcer [Recovering/Resolving]
  - Taste disorder [Unknown]
  - Blister [Unknown]
  - Alopecia [Unknown]
  - Hair colour changes [Unknown]
  - Gastrointestinal motility disorder [Unknown]
  - Pruritus [Unknown]
  - Arthralgia [Unknown]
  - Anaemia [Unknown]
  - Fatigue [Unknown]
  - Decreased appetite [Unknown]
  - Dyspepsia [Unknown]
  - Stomatitis [Unknown]
  - Nausea [Unknown]
  - Vomiting [Unknown]
  - Dizziness [Unknown]
  - Asthenia [Unknown]
  - Abdominal pain upper [Unknown]
  - Headache [Unknown]
  - Muscle spasms [Recovering/Resolving]
  - Dry skin [Recovering/Resolving]
  - Heart rate increased [Unknown]
  - Catheter site infection [Recovering/Resolving]
  - Nasopharyngitis [Not Recovered/Not Resolved]
  - Back pain [Unknown]
  - Product dose omission issue [Unknown]
